FAERS Safety Report 4555970-8 (Version None)
Quarter: 2005Q1

REPORT INFORMATION
  Report Type: 
  Country: None (occurrence: None)
  Receive Date: 20050110
  Receipt Date: 20040616
  Transmission Date: 20050727
  Serious: Yes (Hospitalization)
  Sender: FDA-Public Use
  Company Number: KDL011847

PATIENT
  Age: 50 Year
  Sex: Female

DRUGS (14)
  1. ANAKINRA [Suspect]
     Indication: RHEUMATOID ARTHRITIS
     Dosage: 100 MG, DAILY, SC
     Route: 058
     Dates: start: 20010718
  2. METHOTREXATE [Concomitant]
  3. ROFECOXIB [Concomitant]
  4. TRAMADOL HCL [Concomitant]
  5. TRAZODONE HCL [Concomitant]
  6. CALCIUM POLYCARBOPHIL [Concomitant]
  7. SERTRALINE HYDROCHLORIDE [Concomitant]
  8. BUMETANIDE [Concomitant]
  9. ACETAMINOPHEN [Concomitant]
  10. OMEPRAZOLE [Concomitant]
  11. METAXALONE [Concomitant]
  12. DIPHENHYDRAMIE HYDROCHLORIDE [Concomitant]
  13. MOMETASONE FUROATE [Concomitant]
  14. FOLIC ACID [Concomitant]

REACTIONS (1)
  - CELLULITIS [None]
